FAERS Safety Report 9882490 (Version 1)
Quarter: 2014Q1

REPORT INFORMATION
  Report Type: Spontaneous
  Country: US (occurrence: US)
  Receive Date: 20140207
  Receipt Date: 20140207
  Transmission Date: 20141002
  Serious: No
  Sender: FDA-Public Use
  Company Number: US-BAYER-2014-014372

PATIENT
  Age: 50 Year
  Sex: Female

DRUGS (4)
  1. BETASERON [Suspect]
     Dosage: 0.062 MG, QOD
     Route: 058
     Dates: start: 201311
  2. BETASERON [Suspect]
     Dosage: 0.125 MG, QOD
     Route: 058
  3. BETASERON [Suspect]
     Dosage: 0.187 MG, QOD
     Route: 058
  4. BETASERON [Suspect]
     Dosage: 0.25 MG, QOD
     Route: 058

REACTIONS (2)
  - Injection site pain [None]
  - Injection site mass [None]
